FAERS Safety Report 24716707 (Version 1)
Quarter: 2024Q4

REPORT INFORMATION
  Report Type: Spontaneous
  Country: US (occurrence: None)
  Receive Date: 20241210
  Receipt Date: 20241210
  Transmission Date: 20250115
  Serious: Yes (Hospitalization)
  Sender: Public
  Company Number: None

PATIENT
  Age: 33 Year
  Sex: Female
  Weight: 101.6 kg

DRUGS (2)
  1. CARBOPLATIN [Suspect]
     Active Substance: CARBOPLATIN
     Dates: end: 20241119
  2. PACLITAXEL [Suspect]
     Active Substance: PACLITAXEL
     Dates: end: 20241119

REACTIONS (8)
  - Hypersensitivity [None]
  - Upper-airway cough syndrome [None]
  - Cough [None]
  - Dyspnoea exertional [None]
  - Pneumonia [None]
  - Sinus tachycardia [None]
  - Lung consolidation [None]
  - Pneumonia bacterial [None]

NARRATIVE: CASE EVENT DATE: 20241125
